FAERS Safety Report 22104650 (Version 1)
Quarter: 2023Q1

REPORT INFORMATION
  Report Type: Spontaneous
  Country: CN (occurrence: CN)
  Receive Date: 20230316
  Receipt Date: 20230316
  Transmission Date: 20230417
  Serious: Yes (Hospitalization)
  Sender: FDA-Public Use
  Company Number: CN-ELI_LILLY_AND_COMPANY-CN202303003693

PATIENT
  Age: 55 Year
  Sex: Male
  Weight: 57 kg

DRUGS (3)
  1. PROZAC [Suspect]
     Active Substance: FLUOXETINE HYDROCHLORIDE
     Indication: Generalised anxiety disorder
     Dosage: 20 MG, BID
     Route: 048
     Dates: start: 20230227, end: 20230302
  2. FLUOXETINE HYDROCHLORIDE [Suspect]
     Active Substance: FLUOXETINE HYDROCHLORIDE
     Indication: Generalised anxiety disorder
     Dosage: 20 MG, DAILY
     Route: 048
     Dates: start: 20230220
  3. FLUOXETINE HYDROCHLORIDE [Suspect]
     Active Substance: FLUOXETINE HYDROCHLORIDE
     Dosage: 20 MG, BID
     Route: 048
     Dates: start: 20230223, end: 20230227

REACTIONS (2)
  - Decreased appetite [Not Recovered/Not Resolved]
  - Dry mouth [Recovering/Resolving]

NARRATIVE: CASE EVENT DATE: 20230227
